FAERS Safety Report 7414785-3 (Version None)
Quarter: 2011Q2

REPORT INFORMATION
  Report Type: 
  Country: None (occurrence: None)
  Receive Date: 20110414
  Receipt Date: 20110412
  Transmission Date: 20111010
  Serious: Yes (Death)
  Sender: FDA-Public Use
  Company Number: GB-PFIZER INC-2011080327

PATIENT
  Age: 55 Year
  Sex: Male

DRUGS (8)
  1. ETOPOSIDE [Suspect]
     Indication: BURKITT'S LYMPHOMA
  2. CYCLOPHOSPHAMIDE [Suspect]
     Indication: BURKITT'S LYMPHOMA
  3. DOXORUBICIN [Suspect]
     Indication: BURKITT'S LYMPHOMA
  4. METHOTREXATE SODIUM [Suspect]
     Indication: BURKITT'S LYMPHOMA
  5. IFOSFAMIDE [Suspect]
     Indication: BURKITT'S LYMPHOMA
  6. VINCRISTINE SULFATE [Suspect]
     Indication: BURKITT'S LYMPHOMA
  7. CYTARABINE [Suspect]
     Indication: BURKITT'S LYMPHOMA
  8. MESNA [Suspect]
     Indication: BURKITT'S LYMPHOMA

REACTIONS (1)
  - TOXICITY TO VARIOUS AGENTS [None]
